FAERS Safety Report 8965635 (Version 1)
Quarter: 2012Q4

REPORT INFORMATION
  Report Type: Spontaneous
  Country: DE (occurrence: None)
  Receive Date: 20121205
  Receipt Date: 20121205
  Transmission Date: 20130627
  Serious: Yes (Other)
  Sender: FDA-Public Use
  Company Number: AUR-APL-2012-05156

PATIENT
  Sex: Male

DRUGS (1)
  1. FINASTERIDE (FINASTERIDE) [Suspect]
     Indication: ALOPECIA
     Route: 048

REACTIONS (6)
  - Arthralgia [None]
  - Depression [None]
  - Myalgia [None]
  - Sleep disorder [None]
  - Erectile dysfunction [None]
  - Genital pain [None]
